FAERS Safety Report 5337843-6 (Version None)
Quarter: 2007Q2

REPORT INFORMATION
  Report Type: 
  Country: None (occurrence: None)
  Receive Date: 20070308
  Receipt Date: 20061214
  Transmission Date: 20071010
  Serious: No
  Sender: FDA-Public Use
  Company Number: 2006-BP-14575BP

PATIENT
  Age: 82 Year
  Sex: Female

DRUGS (2)
  1. SPIRIVA [Suspect]
     Indication: CHRONIC OBSTRUCTIVE PULMONARY DISEASE
     Dosage: 18 MCG (18 MCG, 1 IN D), IH
     Route: 055
  2. IPRATROPIUM BROMIDE AND ALBUTEROL SULFATE NEBULIZER (COMBIVENT /012610 [Concomitant]

REACTIONS (2)
  - VISION BLURRED [None]
  - VITREOUS FLOATERS [None]
